FAERS Safety Report 8117964-5 (Version None)
Quarter: 2012Q1

REPORT INFORMATION
  Report Type: 
  Country: None (occurrence: None)
  Receive Date: 20120202
  Receipt Date: 20120125
  Transmission Date: 20120608
  Serious: Yes (Hospitalization)
  Sender: FDA-Public Use
  Company Number: 2012SP004523

PATIENT
  Sex: Female

DRUGS (3)
  1. CERAZETTE (DESOGESTREL) [Suspect]
     Indication: CONTRACEPTION
     Dates: start: 20060101
  2. DULOXETIME HYDROCHLORIDE [Concomitant]
  3. TOPIRAMATE [Concomitant]

REACTIONS (2)
  - MIGRAINE [None]
  - DEPRESSION [None]
